FAERS Safety Report 6863868-5 (Version None)
Quarter: 2010Q3

REPORT INFORMATION
  Report Type: 
  Country: None (occurrence: None)
  Receive Date: 20100721
  Receipt Date: 20080310
  Transmission Date: 20110219
  Serious: No
  Sender: FDA-Public Use
  Company Number: US-PFIZER INC-2008023599

PATIENT
  Sex: Female
  Weight: 50 kg

DRUGS (2)
  1. CHANTIX [Suspect]
     Indication: SMOKING CESSATION THERAPY
     Route: 048
     Dates: start: 20080229, end: 20080308
  2. ORAL CONTRACEPTIVE NOS [Concomitant]

REACTIONS (5)
  - ANXIETY [None]
  - HOT FLUSH [None]
  - NAUSEA [None]
  - PALPITATIONS [None]
  - VERTIGO [None]
